FAERS Safety Report 5341243-2 (Version None)
Quarter: 2007Q2

REPORT INFORMATION
  Report Type: 
  Country: None (occurrence: None)
  Receive Date: 20070530
  Receipt Date: 20070518
  Transmission Date: 20071010
  Serious: Yes (Life-Threatening, Other)
  Sender: FDA-Public Use
  Company Number: 2007-01068

PATIENT
  Age: 71 Year
  Sex: Male
  Weight: 89.3 kg

DRUGS (11)
  1. VELCADE [Suspect]
     Indication: LYMPHOMA
     Dosage: 2.6 MG, INTRAVENOUS
     Route: 042
     Dates: start: 20051205, end: 20060515
  2. DANAZOL [Concomitant]
  3. ARANESP [Concomitant]
  4. ALPHAGAN [Concomitant]
  5. AMBIEN [Concomitant]
  6. CALCIUM WITH VITAMIN D (ERGOCALCIFEROL, CALCIUM SODIUM LACTATE, CALCIU [Concomitant]
  7. DIGOXIN [Concomitant]
  8. FLOMAX [Concomitant]
  9. HYCODAN [Concomitant]
  10. LOVASTATIN [Concomitant]
  11. SYNTHROID [Concomitant]

REACTIONS (12)
  - ACUTE MYELOID LEUKAEMIA [None]
  - BLADDER CANCER [None]
  - BLOOD COPPER DECREASED [None]
  - DECREASED APPETITE [None]
  - FATIGUE [None]
  - IDIOPATHIC THROMBOCYTOPENIC PURPURA [None]
  - LEUKAEMIA [None]
  - MYELODYSPLASTIC SYNDROME [None]
  - NO THERAPEUTIC RESPONSE [None]
  - PANCYTOPENIA [None]
  - PYREXIA [None]
  - WEIGHT DECREASED [None]
